FAERS Safety Report 21774003 (Version 2)
Quarter: 2023Q1

REPORT INFORMATION
  Report Type: Spontaneous
  Country: US (occurrence: US)
  Receive Date: 20221223
  Receipt Date: 20230119
  Transmission Date: 20230418
  Serious: Yes (Other)
  Sender: FDA-Public Use
  Company Number: US-PURDUE-USA-2022-0298907

PATIENT
  Age: 82 Year
  Sex: Male
  Weight: 68.94 kg

DRUGS (1)
  1. COLACE [Suspect]
     Active Substance: DOCUSATE SODIUM
     Indication: Constipation
     Dosage: UNK UNK, DAILY
     Route: 048
     Dates: start: 20221220, end: 20221220

REACTIONS (5)
  - Choking [Recovered/Resolved]
  - Foreign body in throat [Recovered/Resolved]
  - Rectal injury [Recovered/Resolved]
  - Rectal haemorrhage [Recovered/Resolved]
  - Product quality issue [Recovered/Resolved]

NARRATIVE: CASE EVENT DATE: 20221220
